FAERS Safety Report 22392579 (Version 1)
Quarter: 2023Q2

REPORT INFORMATION
  Report Type: Spontaneous
  Country: US (occurrence: None)
  Receive Date: 20230601
  Receipt Date: 20230601
  Transmission Date: 20230722
  Serious: Yes (Hospitalization)
  Sender: FDA-Public Use
  Company Number: 2023A121995

PATIENT
  Sex: Male

DRUGS (1)
  1. IMJUDO [Suspect]
     Active Substance: TREMELIMUMAB-ACTL
     Route: 042

REACTIONS (3)
  - Colitis [Unknown]
  - Pancytopenia [Unknown]
  - Neutropenia [Unknown]
